FAERS Safety Report 17088151 (Version 7)
Quarter: 2024Q4

REPORT INFORMATION
  Report Type: Spontaneous
  Country: US (occurrence: US)
  Receive Date: 20191128
  Receipt Date: 20241231
  Transmission Date: 20250114
  Serious: Yes (Other)
  Sender: PFIZER
  Company Number: US-PFIZER INC-2019512329

PATIENT
  Age: 75 Year
  Sex: Female

DRUGS (2)
  1. IBRANCE [Suspect]
     Active Substance: PALBOCICLIB
     Indication: Breast cancer female
     Dosage: 100 MG, TAKE ONE TABLET DAILY
     Route: 048
  2. IBRANCE [Suspect]
     Active Substance: PALBOCICLIB
     Dosage: 100MG, 1 TABLET DAILY FOR 3 WEEKS FOLLOWED BY 1 WEEK OFF
     Route: 048

REACTIONS (1)
  - Arterial occlusive disease [Unknown]

NARRATIVE: CASE EVENT DATE: 20190101
